FAERS Safety Report 12580922 (Version 1)
Quarter: 2016Q3

REPORT INFORMATION
  Report Type: Spontaneous
  Country: CN (occurrence: CN)
  Receive Date: 20160721
  Receipt Date: 20160721
  Transmission Date: 20161109
  Serious: Yes (Other)
  Sender: FDA-Public Use
  Company Number: CN-HQ SPECIALTY-CN-2016INT000586

PATIENT
  Age: 55 Year

DRUGS (2)
  1. PACLITAXEL. [Suspect]
     Active Substance: PACLITAXEL
     Indication: LUNG ADENOCARCINOMA
     Dosage: 100 MG/M2, UNK
  2. LOBAPLATIN [Suspect]
     Active Substance: LOBAPLATIN
     Indication: LUNG ADENOCARCINOMA
     Dosage: 50 MG/M2, UNK

REACTIONS (2)
  - Postoperative wound infection [Unknown]
  - Escherichia sepsis [Unknown]
